FAERS Safety Report 20308242 (Version 1)
Quarter: 2022Q1

REPORT INFORMATION
  Report Type: Spontaneous
  Country: JP (occurrence: JP)
  Receive Date: 20220107
  Receipt Date: 20220107
  Transmission Date: 20220423
  Serious: Yes (Other)
  Sender: FDA-Public Use
  Company Number: JP-PFIZER INC-202101852294

PATIENT
  Age: 5 Decade

DRUGS (2)
  1. IBRANCE [Suspect]
     Active Substance: PALBOCICLIB
     Indication: Neoplasm recurrence
     Dosage: UNK
  2. FASLODEX [Concomitant]
     Active Substance: FULVESTRANT
     Indication: Neoplasm recurrence
     Dosage: UNK

REACTIONS (4)
  - Eyelid oedema [Unknown]
  - Somnolence [Unknown]
  - Face oedema [Unknown]
  - Neoplasm progression [Unknown]
